FAERS Safety Report 10711958 (Version 4)
Quarter: 2015Q2

REPORT INFORMATION
  Report Type: Spontaneous
  Country: US (occurrence: US)
  Receive Date: 20150114
  Receipt Date: 20150521
  Transmission Date: 20150821
  Serious: Yes (Hospitalization, Other)
  Sender: FDA-Public Use
  Company Number: US-GLAXOSMITHKLINE-US2015GSK003876

PATIENT
  Age: 81 Year
  Sex: Male

DRUGS (5)
  1. VITAMINS [Concomitant]
     Active Substance: VITAMINS
  2. MIRALAX [Concomitant]
     Active Substance: POLYETHYLENE GLYCOL 3350
  3. LOVAZA [Suspect]
     Active Substance: OMEGA-3-ACID ETHYL ESTERS
     Indication: DRY EYE
     Dosage: UNK, QD
     Route: 048
  4. ASPIRIN. [Concomitant]
     Active Substance: ASPIRIN
  5. FINASTERIDE. [Concomitant]
     Active Substance: FINASTERIDE

REACTIONS (2)
  - Prostatic haemorrhage [Not Recovered/Not Resolved]
  - Prostatic operation [Not Recovered/Not Resolved]
